FAERS Safety Report 6986190-5 (Version None)
Quarter: 2010Q3

REPORT INFORMATION
  Report Type: 
  Country: None (occurrence: None)
  Receive Date: 20100915
  Receipt Date: 20090616
  Transmission Date: 20110219
  Serious: No
  Sender: FDA-Public Use
  Company Number: US-WYE-H09777209

PATIENT
  Age: 32 Year
  Sex: Female

DRUGS (2)
  1. PRISTIQ [Suspect]
     Route: 048
     Dates: start: 20090120, end: 20090101
  2. PRISTIQ [Suspect]
     Dosage: TAPERED OFF PRISTIQ BY INCREASING THE DOSING INTERVAL
     Route: 048
     Dates: start: 20090101, end: 20090514

REACTIONS (5)
  - DIZZINESS [None]
  - DRUG WITHDRAWAL SYNDROME [None]
  - HEADACHE [None]
  - IRRITABILITY [None]
  - MYALGIA [None]
